FAERS Safety Report 16966488 (Version 1)
Quarter: 2019Q4

REPORT INFORMATION
  Report Type: Spontaneous
  Country: US (occurrence: US)
  Receive Date: 20190910
  Receipt Date: 20190910
  Transmission Date: 20200122
  Serious: No
  Sender: FDA-Public Use
  Company Number: None

PATIENT
  Age: 65 Year
  Sex: Female

DRUGS (1)
  1. CAPECITABINE 500MG [Suspect]
     Active Substance: CAPECITABINE
     Indication: BREAST CANCER FEMALE
     Route: 048
     Dates: start: 20190807

REACTIONS (8)
  - Vulvovaginal dryness [None]
  - Dry mouth [None]
  - Decreased appetite [None]
  - Palmar-plantar erythrodysaesthesia syndrome [None]
  - Nausea [None]
  - Stomatitis [None]
  - Gingival pain [None]
  - Nasal dryness [None]

NARRATIVE: CASE EVENT DATE: 20190810
